FAERS Safety Report 6884081-1 (Version None)
Quarter: 2010Q3

REPORT INFORMATION
  Report Type: 
  Country: None (occurrence: None)
  Receive Date: 20100729
  Receipt Date: 20100713
  Transmission Date: 20110219
  Serious: Yes (Death, Other)
  Sender: FDA-Public Use
  Company Number: GB-GENENTECH-295236

PATIENT
  Age: 84 Year
  Sex: Female

DRUGS (3)
  1. LUCENTIS [Suspect]
     Indication: MACULAR DEGENERATION
     Dosage: UNK
     Route: 031
     Dates: end: 20090417
  2. BENDROFLUAZIDE [Concomitant]
     Indication: CARDIAC FAILURE
  3. LEVOTHYROXINE SODIUM [Concomitant]
     Indication: CARDIAC FAILURE

REACTIONS (6)
  - ARTERIOSCLEROSIS [None]
  - FALL [None]
  - HAEMORRHAGE INTRACRANIAL [None]
  - HEAD INJURY [None]
  - SKULL FRACTURE [None]
  - SUBARACHNOID HAEMORRHAGE [None]
